FAERS Safety Report 5975553-2 (Version None)
Quarter: 2008Q4

REPORT INFORMATION
  Report Type: 
  Country: None (occurrence: None)
  Receive Date: 20081202
  Receipt Date: 20080606
  Transmission Date: 20090506
  Serious: Yes (Other)
  Sender: FDA-Public Use
  Company Number: A0731764A

PATIENT
  Age: 41 Year
  Sex: Male

DRUGS (6)
  1. AUGMENTIN '125' [Suspect]
     Indication: CHRONIC SINUSITIS
     Dosage: 2000MG TWICE PER DAY
     Route: 048
     Dates: start: 20080528
  2. HUMALOG [Concomitant]
  3. PREDNISONE TAB [Concomitant]
  4. ADVAIR HFA [Concomitant]
  5. VERAMYST [Concomitant]
  6. ASTELIN [Concomitant]

REACTIONS (1)
  - HEPATIC ENZYME INCREASED [None]
